FAERS Safety Report 9867264 (Version 2)
Quarter: 2014Q1

REPORT INFORMATION
  Report Type: Report from Study
  Country: CL (occurrence: CL)
  Receive Date: 20140204
  Receipt Date: 20140204
  Transmission Date: 20141002
  Serious: Yes (Other)
  Sender: FDA-Public Use
  Company Number: CL-BRISTOL-MYERS SQUIBB COMPANY-19403971

PATIENT
  Age: 52 Year
  Sex: Female

DRUGS (11)
  1. ORENCIA [Suspect]
     Indication: RHEUMATOID ARTHRITIS
     Dosage: 3 VIALS
     Route: 042
     Dates: start: 20130725
  2. METHOTREXATE [Concomitant]
  3. AZULFIDINE [Concomitant]
  4. PREDNISONE [Concomitant]
  5. LANSOPRAZOLE [Concomitant]
  6. FLUTICASONE [Concomitant]
  7. CELEBRA [Concomitant]
  8. COLECALCIFEROL [Concomitant]
  9. PREGABALIN [Concomitant]
  10. GLUCOPHAGE [Concomitant]
  11. INSULATARD [Concomitant]

REACTIONS (4)
  - Pulmonary fibrosis [Not Recovered/Not Resolved]
  - Gastritis [Not Recovered/Not Resolved]
  - Respiratory tract infection viral [Recovered/Resolved]
  - Fall [Unknown]
